FAERS Safety Report 8612318-7 (Version None)
Quarter: 2012Q3

REPORT INFORMATION
  Report Type: 
  Country: None (occurrence: None)
  Receive Date: 20120810
  Receipt Date: 20120810
  Transmission Date: 20120928
  Serious: Yes (Life-Threatening, Hospitalization)
  Sender: FDA-Public Use
  Company Number: None

PATIENT
  Age: 85 Year
  Sex: Female
  Weight: 78.0187 kg

DRUGS (2)
  1. EPTIFIBATIDE [Suspect]
     Indication: ACUTE MYOCARDIAL INFARCTION
     Dosage: IV DRIP
     Route: 041
  2. HEPARIN [Suspect]
     Dosage: 1290 UNITS/HR IV DRIP
     Route: 041

REACTIONS (2)
  - EPISTAXIS [None]
  - THROMBOCYTOPENIA [None]
